FAERS Safety Report 21897268 (Version 2)
Quarter: 2023Q1

REPORT INFORMATION
  Report Type: Spontaneous
  Country: CN (occurrence: CN)
  Receive Date: 20230123
  Receipt Date: 20230131
  Transmission Date: 20230417
  Serious: Yes (Other)
  Sender: FDA-Public Use
  Company Number: CN-PFIZER INC-PV202300010969

PATIENT
  Age: 35 Year
  Sex: Female

DRUGS (3)
  1. CRIZOTINIB [Suspect]
     Active Substance: CRIZOTINIB
     Dosage: UNK
     Route: 048
     Dates: start: 20160930
  2. ENSARTINIB [Suspect]
     Active Substance: ENSARTINIB
     Dosage: UNK
     Route: 048
     Dates: start: 201801
  3. ENSARTINIB [Suspect]
     Active Substance: ENSARTINIB
     Dosage: 200 MG, QD
     Route: 048
     Dates: start: 20180416

REACTIONS (7)
  - Aspartate aminotransferase increased [Unknown]
  - Alanine aminotransferase increased [Unknown]
  - Pericardial effusion [Unknown]
  - Condition aggravated [Unknown]
  - Splenomegaly [Unknown]
  - Pelvic fluid collection [Unknown]
  - Neoplasm progression [Unknown]

NARRATIVE: CASE EVENT DATE: 20171214
